FAERS Safety Report 7534643-3 (Version None)
Quarter: 2011Q2

REPORT INFORMATION
  Report Type: 
  Country: None (occurrence: None)
  Receive Date: 20110609
  Receipt Date: 20110215
  Transmission Date: 20111010
  Serious: Yes (Other)
  Sender: FDA-Public Use
  Company Number: PHHY2011US13045

PATIENT
  Age: 7 Year
  Sex: Female

DRUGS (4)
  1. IMATINIB MESYLATE [Suspect]
     Indication: CHRONIC MYELOID LEUKAEMIA
     Dosage: 340 MG/M2, UNK
     Route: 048
  2. CLONIDINE [Concomitant]
  3. ARGININE [Concomitant]
  4. CORTISOL [Concomitant]

REACTIONS (4)
  - GROWTH RETARDATION [None]
  - BLOOD CALCIUM DECREASED [None]
  - INSULIN-LIKE GROWTH FACTOR DECREASED [None]
  - NAUSEA [None]
